FAERS Safety Report 16492841 (Version 1)
Quarter: 2019Q2

REPORT INFORMATION
  Report Type: Spontaneous
  Country: CZ (occurrence: CZ)
  Receive Date: 20190628
  Receipt Date: 20190628
  Transmission Date: 20190711
  Serious: Yes (Death, Hospitalization)
  Sender: FDA-Public Use
  Company Number: CZ-AUROBINDO-AUR-APL-2019-036214

PATIENT

DRUGS (10)
  1. SUMETROLIM [Suspect]
     Active Substance: SULFAMETHOXAZOLE\TRIMETHOPRIM
     Indication: RENAL CANCER
     Dosage: UNK
     Route: 065
     Dates: start: 201812
  2. CLARITHROMYCIN. [Concomitant]
     Active Substance: CLARITHROMYCIN
     Indication: BRONCHITIS
     Dosage: UNK
     Route: 065
     Dates: start: 201812
  3. SOLU-MEDROL [Suspect]
     Active Substance: METHYLPREDNISOLONE SODIUM SUCCINATE
     Indication: RENAL CANCER
     Dosage: 1 MILLIGRAM/KILOGRAM
     Route: 042
     Dates: start: 201812
  4. ATEZOLIZUMAB. [Concomitant]
     Active Substance: ATEZOLIZUMAB
     Indication: RENAL CANCER
     Dosage: UNK
     Route: 065
  5. FLUCONAZOLE. [Suspect]
     Active Substance: FLUCONAZOLE
     Indication: RENAL CANCER
     Dosage: UNK
     Route: 065
     Dates: start: 201812
  6. SOLU-MEDROL [Suspect]
     Active Substance: METHYLPREDNISOLONE SODIUM SUCCINATE
     Dosage: 2 MILLIGRAM/KILOGRAM (INCREASED)
     Route: 042
     Dates: start: 201812
  7. CEFUROXIME. [Suspect]
     Active Substance: CEFUROXIME
     Indication: RENAL CANCER
     Dosage: UNK
     Route: 065
     Dates: start: 201812
  8. NIVOLUMAB [Concomitant]
     Active Substance: NIVOLUMAB
     Indication: RENAL CANCER
     Dosage: UNK
     Route: 065
     Dates: start: 201811
  9. SUNITINIB [Concomitant]
     Active Substance: SUNITINIB
     Indication: RENAL CANCER
     Dosage: UNK
     Route: 065
     Dates: start: 201711
  10. CABOZANTINIB [Concomitant]
     Active Substance: CABOZANTINIB
     Indication: RENAL CANCER
     Dosage: UNK (2ND LINE)
     Route: 065
     Dates: start: 2018

REACTIONS (1)
  - Drug ineffective [Fatal]

NARRATIVE: CASE EVENT DATE: 201812
